FAERS Safety Report 17682968 (Version 2)
Quarter: 2020Q2

REPORT INFORMATION
  Report Type: Report from Study
  Country: DO (occurrence: DO)
  Receive Date: 20200420
  Receipt Date: 20200505
  Transmission Date: 20200714
  Serious: Yes (Life-Threatening, Other)
  Sender: FDA-Public Use
  Company Number: DO-ROCHE-2584764

PATIENT
  Age: 21 Year
  Sex: Female

DRUGS (1)
  1. XOLAIR [Suspect]
     Active Substance: OMALIZUMAB
     Indication: PRODUCT USED FOR UNKNOWN INDICATION
     Dosage: 150 MG,4 YEARS AGO APPROXIAMETELY
     Route: 065

REACTIONS (5)
  - Anaphylactic shock [Unknown]
  - Asthma [Unknown]
  - Food allergy [Unknown]
  - Hypersensitivity [Unknown]
  - Malaise [Unknown]
